FAERS Safety Report 4604475-4 (Version None)
Quarter: 2005Q2

REPORT INFORMATION
  Report Type: 
  Country: None (occurrence: None)
  Receive Date: 20050217
  Receipt Date: 20041201
  Transmission Date: 20051028
  Serious: No
  Sender: FDA-Public Use
  Company Number: S04-USA-07584

PATIENT
  Age: 87 Year
  Sex: Female

DRUGS (9)
  1. NAMENDA [Suspect]
     Indication: DEMENTIA ALZHEIMER'S TYPE
     Dosage: 5 MG BID PO
     Route: 048
     Dates: start: 20041123, end: 20041129
  2. NAMENDA [Suspect]
     Indication: DEMENTIA ALZHEIMER'S TYPE
     Dosage: 15 MG QD PO
     Route: 048
     Dates: start: 20041130
  3. NAMENDA [Suspect]
     Indication: DEMENTIA ALZHEIMER'S TYPE
     Dosage: 5 MG QD PO
     Route: 048
     Dates: start: 20041116, end: 20041122
  4. REMINYL [Concomitant]
  5. SINEMET [Concomitant]
  6. LEVOXYL [Concomitant]
  7. DIOVAN [Concomitant]
  8. LEXAPRO [Concomitant]
  9. DITROPAN [Concomitant]

REACTIONS (1)
  - DECREASED APPETITE [None]
